FAERS Safety Report 23357132 (Version 1)
Quarter: 2023Q4

REPORT INFORMATION
  Report Type: Spontaneous
  Country: US (occurrence: None)
  Receive Date: 20231230
  Receipt Date: 20231230
  Transmission Date: 20240110
  Serious: Yes (Other)
  Sender: FDA-Public Use
  Company Number: None

PATIENT
  Age: 41 Year
  Sex: Female
  Weight: 110.25 kg

DRUGS (8)
  1. EMGALITY [Suspect]
     Active Substance: GALCANEZUMAB-GNLM
     Indication: Migraine prophylaxis
     Dosage: 1 INJECTION 1 MONTHLY SUBCUTANEOUS
     Route: 058
     Dates: start: 20231109, end: 20231209
  2. EFFEXOR [Concomitant]
     Active Substance: VENLAFAXINE HYDROCHLORIDE
  3. LAMICTAL [Concomitant]
     Active Substance: LAMOTRIGINE
  4. RITALIN [Concomitant]
     Active Substance: METHYLPHENIDATE HYDROCHLORIDE
  5. VITAMIN D3 [Concomitant]
     Active Substance: CHOLECALCIFEROL
  6. WELLBUTRIN [Concomitant]
     Active Substance: BUPROPION HYDROCHLORIDE
  7. CLARITIN [Concomitant]
     Active Substance: LORATADINE
  8. PROBIOTICS NOS [Concomitant]
     Active Substance: PROBIOTICS NOS

REACTIONS (13)
  - Menopausal symptoms [None]
  - Migraine [None]
  - Alopecia [None]
  - Heavy menstrual bleeding [None]
  - Acne [None]
  - Loss of libido [None]
  - Intermenstrual bleeding [None]
  - Menstruation delayed [None]
  - Pain [None]
  - Vomiting [None]
  - Fatigue [None]
  - Drug ineffective [None]
  - Paradoxical drug reaction [None]

NARRATIVE: CASE EVENT DATE: 20231228
